FAERS Safety Report 4521044-5 (Version None)
Quarter: 2004Q4

REPORT INFORMATION
  Report Type: 
  Country: None (occurrence: None)
  Receive Date: 20041206
  Receipt Date: 20041119
  Transmission Date: 20050328
  Serious: Yes (Hospitalization)
  Sender: FDA-Public Use
  Company Number: A02200402415

PATIENT
  Age: 50 Year
  Sex: Female

DRUGS (5)
  1. STILLNOX - (ZOLPIDEM) - TABLET - 10 MG [Suspect]
     Indication: SLEEP DISORDER
     Dosage: 200 MG ONCE
     Route: 048
     Dates: start: 20040715, end: 20040715
  2. TERCIAN - (CYAMEMAZINE) - TABLET - 25 MG [Suspect]
     Indication: MENTAL DISORDER
     Dosage: 1000 MG ONCE
     Route: 048
     Dates: start: 20040715, end: 20040715
  3. LYSANXIA - (PRAZEPAM) - TABLET- 40 MG [Suspect]
     Dosage: 10400 MG ONCE
     Route: 048
     Dates: start: 20040715, end: 20040715
  4. PAROXETINE HCL [Suspect]
     Dates: start: 20040715, end: 20040715
  5. PROPOFAN (PARACETAMOL/CAFFEINE/DEXTROPROPOXYPHENE)- TABLET - 457 MG [Suspect]
     Route: 048
     Dates: start: 20040715, end: 20040715

REACTIONS (11)
  - AGRANULOCYTOSIS [None]
  - COMA [None]
  - INTENTIONAL OVERDOSE [None]
  - LYMPHOCYTE PERCENTAGE DECREASED [None]
  - MONOCYTE PERCENTAGE DECREASED [None]
  - MULTIPLE DRUG OVERDOSE INTENTIONAL [None]
  - NEUTROPHIL PERCENTAGE INCREASED [None]
  - PYREXIA [None]
  - RED BLOOD CELL COUNT DECREASED [None]
  - SUICIDE ATTEMPT [None]
  - WHITE BLOOD CELL COUNT DECREASED [None]
